FAERS Safety Report 18261517 (Version 1)
Quarter: 2020Q3

REPORT INFORMATION
  Report Type: Spontaneous
  Country: US (occurrence: US)
  Receive Date: 20200914
  Receipt Date: 20200914
  Transmission Date: 20201103
  Serious: No
  Sender: FDA-Public Use
  Company Number: US-AMGEN-USASP2020147604

PATIENT
  Age: 58 Year
  Sex: Male

DRUGS (1)
  1. ENBREL [Suspect]
     Active Substance: ETANERCEPT
     Indication: RHEUMATOID ARTHRITIS
     Dosage: UNK UNK, EVERY 20 TO 30 DAYS
     Route: 065
     Dates: start: 2013

REACTIONS (4)
  - Injection site swelling [Unknown]
  - Intentional product misuse [Unknown]
  - Wrong technique in product usage process [Unknown]
  - Injection site haemorrhage [Unknown]

NARRATIVE: CASE EVENT DATE: 20200903
